FAERS Safety Report 9079269 (Version 1)
Quarter: 2013Q1

REPORT INFORMATION
  Report Type: Spontaneous
  Country: US (occurrence: US)
  Receive Date: 20130130
  Receipt Date: 20130130
  Transmission Date: 20140127
  Serious: No
  Sender: FDA-Public Use
  Company Number: US-ABBOTT-12P-163-0962962-00

PATIENT
  Sex: Female
  Weight: 83.99 kg

DRUGS (5)
  1. HUMIRA 40 MG/0.8 ML PEN [Suspect]
     Indication: COLITIS
     Route: 058
     Dates: start: 201010
  2. HUMIRA 40 MG/0.8 ML PEN [Suspect]
     Indication: ARTHRITIS
  3. ASACOL [Concomitant]
     Indication: COLITIS
     Route: 048
     Dates: start: 200901
  4. LISINOPRIL [Concomitant]
     Indication: PRODUCT USED FOR UNKNOWN INDICATION
     Route: 048
     Dates: start: 201111
  5. OMEPRAZOLE [Concomitant]
     Indication: GASTROOESOPHAGEAL REFLUX DISEASE
     Route: 048

REACTIONS (1)
  - Off label use [Unknown]
